FAERS Safety Report 23671962 (Version 1)
Quarter: 2024Q1

REPORT INFORMATION
  Report Type: Spontaneous
  Country: US (occurrence: US)
  Receive Date: 20240326
  Receipt Date: 20240326
  Transmission Date: 20240410
  Serious: Yes (Other)
  Sender: FDA-Public Use
  Company Number: US-ARGENX-2023-ARGX-US004154

PATIENT

DRUGS (6)
  1. VYVGART [Suspect]
     Active Substance: EFGARTIGIMOD ALFA-FCAB
     Indication: Myasthenia gravis
     Dosage: 1200 MG, 1/WEEK (SOL 400MG 20ML SDV))
     Route: 042
     Dates: start: 20231103
  2. VYVGART [Suspect]
     Active Substance: EFGARTIGIMOD ALFA-FCAB
     Indication: Asthma
  3. ALBUTEROL [Concomitant]
     Active Substance: ALBUTEROL
     Indication: Product used for unknown indication
     Dosage: SU AER 108 (90)
     Route: 065
  4. PYRIDOSTIGMINE [Concomitant]
     Active Substance: PYRIDOSTIGMINE
     Indication: Product used for unknown indication
     Dosage: 60 MG
     Route: 065
  5. SYMBICORT [Concomitant]
     Active Substance: BUDESONIDE\FORMOTEROL FUMARATE DIHYDRATE
     Indication: Product used for unknown indication
     Dosage: 160-4.5MCG
     Route: 065
  6. TELMISARTAN [Concomitant]
     Active Substance: TELMISARTAN
     Indication: Product used for unknown indication
     Dosage: 40 MG
     Route: 065

REACTIONS (12)
  - Dyspnoea at rest [Unknown]
  - Choking [Unknown]
  - Muscular weakness [Unknown]
  - Speech disorder [Unknown]
  - Mastication disorder [Unknown]
  - Chest discomfort [Unknown]
  - Diplopia [Unknown]
  - Fatigue [Unknown]
  - Muscle fatigue [Unknown]
  - Asthenia [Unknown]
  - Therapy interrupted [Unknown]
  - Product use in unapproved indication [Unknown]
